FAERS Safety Report 9896393 (Version 1)
Quarter: 2014Q1

REPORT INFORMATION
  Report Type: Spontaneous
  Country: US (occurrence: US)
  Receive Date: 20140213
  Receipt Date: 20140213
  Transmission Date: 20141002
  Serious: No
  Sender: FDA-Public Use
  Company Number: US-BRISTOL-MYERS SQUIBB COMPANY-19806272

PATIENT
  Age: 69 Year
  Sex: Male
  Weight: 81.63 kg

DRUGS (8)
  1. ABATACEPT SUBQ INJECTION 125MG/ML [Suspect]
     Indication: RHEUMATOID ARTHRITIS
     Route: 058
  2. METOPROLOL TARTRATE [Concomitant]
     Dosage: TABS
  3. METHOTREXATE [Concomitant]
     Dosage: TABS
  4. FOLIC ACID [Concomitant]
     Dosage: TABS
  5. LISINOPRIL [Concomitant]
     Dosage: TABS
  6. ATORVASTATIN [Concomitant]
     Dosage: TABS
  7. MOBIC [Concomitant]
     Dosage: TABS
  8. NEXIUM [Concomitant]
     Dosage: CAPS

REACTIONS (2)
  - Cough [Unknown]
  - Drug ineffective [Unknown]
